FAERS Safety Report 18860999 (Version 1)
Quarter: 2021Q1

REPORT INFORMATION
  Report Type: Spontaneous
  Country: ES (occurrence: ES)
  Receive Date: 20210208
  Receipt Date: 20210208
  Transmission Date: 20210420
  Serious: Yes (Other)
  Sender: FDA-Public Use
  Company Number: NVSC2021ES021638

PATIENT
  Age: 95 Year
  Sex: Female

DRUGS (3)
  1. MEROPENEM. [Suspect]
     Active Substance: MEROPENEM
     Indication: RESPIRATORY TRACT INFECTION
     Dosage: 1 G, Q8H
     Route: 042
     Dates: start: 20191126, end: 20191129
  2. LEVOFLOXACINO [Suspect]
     Active Substance: LEVOFLOXACIN
     Indication: RESPIRATORY TRACT INFECTION
     Dosage: 250 MG, Q24H
     Route: 042
     Dates: start: 20191118, end: 20191126
  3. CLINDAMICINA [Suspect]
     Active Substance: CLINDAMYCIN HYDROCHLORIDE
     Indication: RESPIRATORY TRACT INFECTION
     Dosage: 600 MG, Q8H
     Route: 042
     Dates: start: 20191120, end: 20191126

REACTIONS (2)
  - Eosinophilia [Unknown]
  - Toxic skin eruption [Unknown]

NARRATIVE: CASE EVENT DATE: 20191130
